FAERS Safety Report 16737644 (Version 1)
Quarter: 2019Q3

REPORT INFORMATION
  Report Type: Spontaneous
  Country: US (occurrence: US)
  Receive Date: 20190823
  Receipt Date: 20190823
  Transmission Date: 20191005
  Serious: Yes (Hospitalization)
  Sender: FDA-Public Use
  Company Number: US-PRINSTON PHARMACEUTICAL INC.-2019PRN00765

PATIENT
  Age: 33 Year
  Sex: Female

DRUGS (2)
  1. ESCITALOPRAM [Suspect]
     Active Substance: ESCITALOPRAM OXALATE
     Indication: GENERALISED ANXIETY DISORDER
     Dosage: 10 MG
     Route: 065
  2. ESTROGEN ORAL CONTRACEPTIVE [Concomitant]
     Dosage: UNK
     Route: 065

REACTIONS (3)
  - Torticollis [Recovered/Resolved]
  - Conversion disorder [Recovered/Resolved]
  - Tardive dyskinesia [Recovered/Resolved]
